FAERS Safety Report 9874638 (Version 1)
Quarter: 2014Q1

REPORT INFORMATION
  Report Type: Other
  Country: TR (occurrence: TR)
  Receive Date: 20140206
  Receipt Date: 20140206
  Transmission Date: 20141002
  Serious: Yes (Other)
  Sender: FDA-Public Use
  Company Number: TR-BRISTOL-MYERS SQUIBB COMPANY-20158630

PATIENT
  Age: 44 Year
  Sex: Male

DRUGS (1)
  1. THALLIUM [Suspect]
     Dosage: THALLIUM 201

REACTIONS (2)
  - Hypokalaemia [Unknown]
  - Ventricular fibrillation [Unknown]
